FAERS Safety Report 4436386-1 (Version None)
Quarter: 2004Q3

REPORT INFORMATION
  Report Type: 
  Country: None (occurrence: None)
  Receive Date: 20040728
  Receipt Date: 20040220
  Transmission Date: 20050211
  Serious: Yes (Other)
  Sender: FDA-Public Use
  Company Number: 203358

PATIENT
  Age: 58 Year
  Sex: Male

DRUGS (3)
  1. RITUXAN [Suspect]
     Indication: CHRONIC LYMPHOCYTIC LEUKAEMIA
     Dosage: 900 MG, Q4W, INTRAVENOUS
     Route: 042
     Dates: start: 20030401, end: 20030908
  2. CYTOXAN [Concomitant]
  3. FLUDARABINE (FLUDARABINE PHOSPHATE) [Concomitant]

REACTIONS (2)
  - NEUTROPENIA [None]
  - THROMBOCYTOPENIA [None]
